FAERS Safety Report 7491530-7 (Version None)
Quarter: 2011Q2

REPORT INFORMATION
  Report Type: 
  Country: None (occurrence: None)
  Receive Date: 20110519
  Receipt Date: 20110506
  Transmission Date: 20111010
  Serious: Yes (Hospitalization)
  Sender: FDA-Public Use
  Company Number: CA-ELI_LILLY_AND_COMPANY-CA201105001725

PATIENT
  Sex: Female
  Weight: 52.154 kg

DRUGS (9)
  1. RIVATRIL [Concomitant]
  2. ZYPREXA [Suspect]
     Dosage: 5 MG, QD
     Route: 048
     Dates: start: 20030109
  3. SERC                               /00034201/ [Concomitant]
  4. CELEXA [Concomitant]
  5. CALCIUM CARBONATE [Concomitant]
  6. VITAMIN D [Concomitant]
  7. ZYPREXA [Suspect]
     Indication: DEPRESSION
     Dosage: 2.5 MG, QD
     Route: 048
     Dates: start: 20020201
  8. WELLBUTRIN [Concomitant]
  9. TRAZODONE HCL [Concomitant]

REACTIONS (9)
  - CHOLANGITIS [None]
  - BILE DUCT STONE [None]
  - ORTHOSTATIC HYPOTENSION [None]
  - HAEMORRHAGE [None]
  - DYSLIPIDAEMIA [None]
  - JAUNDICE CHOLESTATIC [None]
  - URINARY TRACT INFECTION [None]
  - DIABETES MELLITUS [None]
  - OFF LABEL USE [None]
